FAERS Safety Report 19274243 (Version 1)
Quarter: 2021Q2

REPORT INFORMATION
  Report Type: Spontaneous
  Country: US (occurrence: US)
  Receive Date: 20210519
  Receipt Date: 20210519
  Transmission Date: 20210717
  Serious: Yes (Hospitalization)
  Sender: FDA-Public Use
  Company Number: None

PATIENT
  Age: 81 Year
  Sex: Male
  Weight: 77.85 kg

DRUGS (23)
  1. LITHIUM. [Concomitant]
     Active Substance: LITHIUM
  2. ZINC. [Concomitant]
     Active Substance: ZINC
  3. SYNTHROID [Concomitant]
     Active Substance: LEVOTHYROXINE SODIUM
  4. CALCIUM [Concomitant]
     Active Substance: CALCIUM
  5. MONTELUKAST [Concomitant]
     Active Substance: MONTELUKAST SODIUM
  6. LORAZEPAM. [Concomitant]
     Active Substance: LORAZEPAM
  7. GLUCOSAMINE CHONDROITIN [Concomitant]
     Active Substance: CHONDROITIN SULFATE (BOVINE)\GLUCOSAMINE HYDROCHLORIDE
  8. TURMERIC [Concomitant]
     Active Substance: HERBALS\TURMERIC
  9. VOLTAREN [Concomitant]
     Active Substance: DICLOFENAC SODIUM
  10. KETOCONAZOLE. [Concomitant]
     Active Substance: KETOCONAZOLE
  11. XYZAL [Concomitant]
     Active Substance: LEVOCETIRIZINE DIHYDROCHLORIDE
  12. PROBIOTICS [Concomitant]
     Active Substance: PROBIOTICS NOS
  13. MELATONIN [Concomitant]
     Active Substance: MELATONIN
  14. XARELTO [Suspect]
     Active Substance: RIVAROXABAN
     Indication: ATRIAL FIBRILLATION
     Dosage: ?          QUANTITY:1 TABLET(S);?
     Route: 048
     Dates: start: 20180815, end: 20210512
  15. MECLIZINE [Concomitant]
     Active Substance: MECLIZINE HYDROCHLORIDE
  16. VITAMIN E [Concomitant]
     Active Substance: .ALPHA.-TOCOPHEROL
  17. RITALIN [Concomitant]
     Active Substance: METHYLPHENIDATE HYDROCHLORIDE
  18. FISH OIL [Concomitant]
     Active Substance: FISH OIL
  19. TYLENOL [Concomitant]
     Active Substance: ACETAMINOPHEN
  20. GINGER ROOT [Concomitant]
     Active Substance: GINGER
  21. MAGNESIUM [Concomitant]
     Active Substance: MAGNESIUM
  22. VITAMIN B12 [Concomitant]
     Active Substance: CYANOCOBALAMIN
  23. MULTIVITAMIN [Concomitant]
     Active Substance: VITAMINS

REACTIONS (1)
  - Anaemia [None]

NARRATIVE: CASE EVENT DATE: 20201225
